FAERS Safety Report 6814002-9 (Version None)
Quarter: 2010Q3

REPORT INFORMATION
  Report Type: 
  Country: None (occurrence: None)
  Receive Date: 20100702
  Receipt Date: 20100621
  Transmission Date: 20110219
  Serious: Yes (Hospitalization)
  Sender: FDA-Public Use
  Company Number: KR-JNJFOC-20100607129

PATIENT
  Sex: Female
  Weight: 53.8 kg

DRUGS (11)
  1. GOLIMUMAB [Suspect]
     Indication: RHEUMATOID ARTHRITIS
     Route: 058
  2. GOLIMUMAB [Suspect]
     Route: 058
  3. METHOTREXATE [Suspect]
     Indication: RHEUMATOID ARTHRITIS
     Route: 048
  4. METHOTREXATE [Suspect]
     Route: 048
  5. FOLIC ACID [Concomitant]
     Route: 048
  6. NABUMETONE [Concomitant]
     Route: 048
  7. METHOTREXATE [Concomitant]
     Route: 048
  8. AMLODIPINE [Concomitant]
     Route: 048
  9. FOSAMAX PLUS D [Concomitant]
     Route: 048
  10. REBAMIPIDE [Concomitant]
     Route: 048
  11. DEFLAZACORT [Concomitant]
     Route: 048

REACTIONS (1)
  - DEAFNESS NEUROSENSORY [None]
